FAERS Safety Report 13538947 (Version 1)
Quarter: 2017Q2

REPORT INFORMATION
  Report Type: Spontaneous
  Country: US (occurrence: US)
  Receive Date: 20170511
  Receipt Date: 20170511
  Transmission Date: 20170830
  Serious: No
  Sender: FDA-Public Use
  Company Number: None

PATIENT
  Sex: Female

DRUGS (1)
  1. CAPECITABINE 500MG ACCORD [Suspect]
     Active Substance: CAPECITABINE
     Indication: COLON CANCER
     Dosage: 150MG BID X7DAYS ON THEN 7 DAYS OFF, THEN REPEAT PO
     Route: 048
     Dates: start: 20170410, end: 20170501

REACTIONS (4)
  - Weight decreased [None]
  - Hypersomnia [None]
  - Drug intolerance [None]
  - Fatigue [None]
